FAERS Safety Report 8880983 (Version 1)
Quarter: 2012Q4

REPORT INFORMATION
  Report Type: 
  Country: US (occurrence: US)
  Receive Date: 20121101
  Receipt Date: 20121101
  Transmission Date: 20130627
  Serious: Yes (Other)
  Sender: FDA-Public Use
  Company Number: US-PFIZER INC-2012267301

PATIENT
  Age: 53 Year

DRUGS (1)
  1. DILANTIN [Suspect]
     Dosage: 100 mg, UNK (4 capsules PO QHS 90 Days)
     Route: 048

REACTIONS (10)
  - Haemorrhagic stroke [Unknown]
  - Asthenia [Unknown]
  - Aphasia [Unknown]
  - Dyslexia [Unknown]
  - Dyslalia [Unknown]
  - Dyslogia [Unknown]
  - Dysarthria [Unknown]
  - Dyskinesia [Unknown]
  - Motor dysfunction [Unknown]
  - Dysacusis [Unknown]
